FAERS Safety Report 18397501 (Version 1)
Quarter: 2020Q4

REPORT INFORMATION
  Report Type: Spontaneous
  Country: US (occurrence: US)
  Receive Date: 20201016
  Receipt Date: 20201016
  Transmission Date: 20210114
  Serious: Yes (Other)
  Sender: FDA-Public Use
  Company Number: None

PATIENT
  Sex: Female
  Weight: 7.3 kg

DRUGS (2)
  1. APIXABAN [Suspect]
     Active Substance: APIXABAN
     Indication: ATRIAL FIBRILLATION
     Route: 048
     Dates: start: 20201013, end: 20201015
  2. ASA [Concomitant]
     Active Substance: ASPIRIN
     Dates: end: 20201015

REACTIONS (3)
  - Rectal haemorrhage [None]
  - Haematocrit increased [None]
  - Haemoglobin decreased [None]
